FAERS Safety Report 7303091-3 (Version None)
Quarter: 2011Q1

REPORT INFORMATION
  Report Type: 
  Country: None (occurrence: None)
  Receive Date: 20110221
  Receipt Date: 20110204
  Transmission Date: 20110831
  Serious: No
  Sender: FDA-Public Use
  Company Number: US-BIOGENIDEC-2010BI041739

PATIENT
  Age: 28 Year
  Sex: Female

DRUGS (2)
  1. TYSABRI [Suspect]
     Route: 042
     Dates: start: 20080201, end: 20091218
  2. TYSABRI [Suspect]
     Indication: MULTIPLE SCLEROSIS
     Route: 042
     Dates: start: 20101027

REACTIONS (6)
  - ANAEMIA [None]
  - CHRONIC SINUSITIS [None]
  - SINUS HEADACHE [None]
  - MULTIPLE ALLERGIES [None]
  - INFLUENZA [None]
  - VITAMIN D DEFICIENCY [None]
